FAERS Safety Report 7832088-X (Version None)
Quarter: 2011Q4

REPORT INFORMATION
  Report Type: 
  Country: None (occurrence: None)
  Receive Date: 20111022
  Receipt Date: 20111010
  Transmission Date: 20120403
  Serious: Yes (Other)
  Sender: FDA-Public Use
  Company Number: US-BAYER-2011-097738

PATIENT
  Age: 37 Year
  Sex: Female

DRUGS (2)
  1. MIRENA [Suspect]
     Indication: MENORRHAGIA
     Dosage: 20 MCG/24HR, CONT
     Route: 015
     Dates: start: 20110830, end: 20111010
  2. MIRENA [Suspect]
     Indication: CONTRACEPTION

REACTIONS (3)
  - GENITAL HAEMORRHAGE [None]
  - VAGINAL HAEMORRHAGE [None]
  - UTERINE HAEMORRHAGE [None]
